APPROVED DRUG PRODUCT: XIGDUO XR
Active Ingredient: DAPAGLIFLOZIN; METFORMIN HYDROCHLORIDE
Strength: 5MG;500MG
Dosage Form/Route: TABLET, EXTENDED RELEASE;ORAL
Application: N205649 | Product #001
Applicant: ASTRAZENECA AB
Approved: Oct 29, 2014 | RLD: Yes | RS: No | Type: RX

PATENTS:
Patent 6515117 | Expires: Oct 4, 2025
Patent 8501698 | Expires: Jun 20, 2027
Patent 8685934 | Expires: May 26, 2030
Patent 7919598 | Expires: Dec 16, 2029
Patent 9616028 | Expires: Nov 12, 2030
Patent 8501698*PED | Expires: Dec 20, 2027
Patent 7919598*PED | Expires: Jun 16, 2030
Patent 8685934*PED | Expires: Nov 26, 2030
Patent 6515117*PED | Expires: Apr 4, 2026
Patent 9616028*PED | Expires: May 12, 2031

EXCLUSIVITY:
Code: NPP | Date: Jun 12, 2027
Code: PED | Date: Dec 12, 2027